FAERS Safety Report 14578632 (Version 2)
Quarter: 2018Q1

REPORT INFORMATION
  Report Type: Report from Study
  Country: US (occurrence: US)
  Receive Date: 20180227
  Receipt Date: 20180319
  Transmission Date: 20180509
  Serious: Yes (Hospitalization, Other)
  Sender: FDA-Public Use
  Company Number: US-TAKEDA-2017MPI008154

PATIENT
  Age: 73 Year
  Sex: Female

DRUGS (5)
  1. PROBIOTIC                          /06395501/ [Concomitant]
     Active Substance: BIFIDOBACTERIUM ANIMALIS LACTIS
  2. IXAZOMIB [Suspect]
     Active Substance: IXAZOMIB
     Indication: PLASMA CELL MYELOMA
     Dosage: 4 MG, UNK
     Route: 048
     Dates: start: 20170914, end: 201802
  3. ELIQUIS [Concomitant]
     Active Substance: APIXABAN
  4. DEXAMETHASONE. [Suspect]
     Active Substance: DEXAMETHASONE
     Indication: PLASMA CELL MYELOMA
     Dosage: UNK
     Route: 065
  5. VITAMIN C [Concomitant]
     Active Substance: ASCORBIC ACID

REACTIONS (13)
  - Heart rate increased [Recovered/Resolved]
  - Fluid retention [Unknown]
  - Weight fluctuation [Unknown]
  - Swelling [Unknown]
  - Feeling abnormal [Unknown]
  - Off label use [Unknown]
  - Fatigue [Unknown]
  - Cardiac failure congestive [Unknown]
  - Angina pectoris [Recovered/Resolved]
  - Nocturia [Unknown]
  - Flatulence [Unknown]
  - Peripheral swelling [Unknown]
  - Influenza [Recovering/Resolving]

NARRATIVE: CASE EVENT DATE: 201802
